FAERS Safety Report 6706634-3 (Version None)
Quarter: 2010Q2

REPORT INFORMATION
  Report Type: 
  Country: None (occurrence: None)
  Receive Date: 20100503
  Receipt Date: 20100421
  Transmission Date: 20101027
  Serious: Yes (Death, Hospitalization)
  Sender: FDA-Public Use
  Company Number: JP-WYE-H13869310

PATIENT
  Age: 85 Year
  Sex: Male

DRUGS (12)
  1. ANCARON [Suspect]
     Indication: VENTRICULAR TACHYCARDIA
     Route: 048
     Dates: start: 20090602, end: 20100224
  2. LASIX [Concomitant]
  3. ALDACTONE [Concomitant]
  4. ISOSORBIDE MONONITRATE [Concomitant]
  5. WARFARIN SODIUM [Concomitant]
  6. PRAVASTATIN SODIUM [Concomitant]
  7. TAKEPRON [Concomitant]
  8. CARVEDILOL [Concomitant]
  9. CILOSTAZOL [Concomitant]
  10. NICORANDIL [Concomitant]
  11. ASPIRIN [Concomitant]
  12. ALLOPURINOL [Concomitant]

REACTIONS (12)
  - ACUTE RESPIRATORY DISTRESS SYNDROME [None]
  - BACTERIAL INFECTION [None]
  - CARDIAC FAILURE CHRONIC [None]
  - CELL MARKER INCREASED [None]
  - CONDITION AGGRAVATED [None]
  - DISSEMINATED INTRAVASCULAR COAGULATION [None]
  - DRUG INEFFECTIVE [None]
  - HYPOPHAGIA [None]
  - INTERSTITIAL LUNG DISEASE [None]
  - PLATELET COUNT DECREASED [None]
  - PLEURAL EFFUSION [None]
  - SYSTEMIC INFLAMMATORY RESPONSE SYNDROME [None]
